FAERS Safety Report 5264573-1 (Version None)
Quarter: 2007Q1

REPORT INFORMATION
  Report Type: 
  Country: None (occurrence: None)
  Receive Date: 20070314
  Receipt Date: 20070309
  Transmission Date: 20070707
  Serious: Yes (Hospitalization)
  Sender: FDA-Public Use
  Company Number: TR-BRISTOL-MYERS SQUIBB COMPANY-13709126

PATIENT
  Age: 48 Year
  Sex: Male

DRUGS (1)
  1. LOMUSTINE [Suspect]
     Indication: GLIOBLASTOMA MULTIFORME
     Route: 048

REACTIONS (3)
  - BONE MARROW FAILURE [None]
  - CONVULSION [None]
  - OVERDOSE [None]
